FAERS Safety Report 6048742-9 (Version None)
Quarter: 2009Q1

REPORT INFORMATION
  Report Type: 
  Country: None (occurrence: None)
  Receive Date: 20090123
  Receipt Date: 20090116
  Transmission Date: 20090719
  Serious: Yes (Hospitalization)
  Sender: FDA-Public Use
  Company Number: GB-ROCHE-590248

PATIENT
  Sex: Female
  Weight: 101.6 kg

DRUGS (5)
  1. ORLISTAT [Suspect]
     Indication: OBESITY
     Route: 048
     Dates: start: 20080619
  2. ASPIRIN [Concomitant]
     Route: 048
  3. GLICLAZIDE [Concomitant]
     Route: 048
  4. METFORMIN [Concomitant]
     Route: 048
  5. SIMVASTATIN [Concomitant]
     Route: 048

REACTIONS (3)
  - ARTHRITIS [None]
  - LIPOMA [None]
  - POST PROCEDURAL COMPLICATION [None]
